FAERS Safety Report 6062144-0 (Version None)
Quarter: 2009Q1

REPORT INFORMATION
  Report Type: 
  Country: None (occurrence: None)
  Receive Date: 20090130
  Receipt Date: 20090130
  Transmission Date: 20090719
  Serious: No
  Sender: FDA-Public Use
  Company Number: None

PATIENT
  Age: 58 Year
  Sex: Male
  Weight: 126.1 kg

DRUGS (2)
  1. AMBIEN [Suspect]
     Indication: DEPRESSION
     Dosage: 1 TAB HS, PRN PO
     Route: 048
     Dates: start: 20081222, end: 20090122
  2. AMBIEN [Suspect]
     Indication: INSOMNIA
     Dosage: 1 TAB HS, PRN PO
     Route: 048
     Dates: start: 20081222, end: 20090122

REACTIONS (4)
  - EYE DISORDER [None]
  - EYE INJURY [None]
  - FALL [None]
  - MEMORY IMPAIRMENT [None]
